FAERS Safety Report 15032285 (Version 1)
Quarter: 2018Q2

REPORT INFORMATION
  Report Type: Spontaneous
  Country: JP (occurrence: JP)
  Receive Date: 20180619
  Receipt Date: 20180619
  Transmission Date: 20180711
  Serious: Yes (Hospitalization)
  Sender: FDA-Public Use
  Company Number: JP-MALLINCKRODT-T201704274

PATIENT
  Age: 53 Year
  Sex: Female
  Weight: 45 kg

DRUGS (8)
  1. CEFMETAZOLE NA [Suspect]
     Active Substance: CEFMETAZOLE
     Indication: INFECTION PROPHYLAXIS
     Dosage: 2 G DAILY
     Route: 041
     Dates: start: 20170508, end: 20170509
  2. OFIRMEV [Suspect]
     Active Substance: ACETAMINOPHEN
     Indication: PROCEDURAL PAIN
     Dosage: 1000 MG DAILY
     Route: 042
     Dates: start: 20170508, end: 20170509
  3. ROPION [Suspect]
     Active Substance: FLURBIPROFEN AXETIL
     Indication: PROCEDURAL PAIN
     Dosage: 50 MG DAILY
     Route: 041
     Dates: start: 20170508, end: 20170509
  4. CALONAL [Suspect]
     Active Substance: ACETAMINOPHEN
     Indication: PROCEDURAL PAIN
     Dosage: 4000 MG DAILY
     Route: 048
     Dates: start: 20170509, end: 20170511
  5. CARTIN [Concomitant]
     Indication: PRODUCT USED FOR UNKNOWN INDICATION
     Dosage: UNK
     Route: 065
  6. FENTANYL. [Suspect]
     Active Substance: FENTANYL
     Indication: PROCEDURAL PAIN
     Dosage: 1000 ?G DAILY
     Route: 041
     Dates: start: 20170508, end: 20170510
  7. SOLYUGEN F [Concomitant]
     Indication: PRODUCT USED FOR UNKNOWN INDICATION
     Dosage: 2000ML
     Route: 041
     Dates: start: 20170508, end: 20170512
  8. CELECOX [Concomitant]
     Active Substance: CELECOXIB
     Indication: PRODUCT USED FOR UNKNOWN INDICATION
     Dosage: 400MG/DAY
     Route: 065
     Dates: start: 20170512

REACTIONS (5)
  - Chromaturia [Recovering/Resolving]
  - Coma [Recovering/Resolving]
  - Ocular icterus [Recovering/Resolving]
  - Hepatitis fulminant [Recovering/Resolving]
  - Asterixis [Recovering/Resolving]

NARRATIVE: CASE EVENT DATE: 20170511
